FAERS Safety Report 14407538 (Version 1)
Quarter: 2018Q1

REPORT INFORMATION
  Report Type: Report from Study
  Country: DE (occurrence: DE)
  Receive Date: 20180118
  Receipt Date: 20180118
  Transmission Date: 20180509
  Serious: Yes (Death, Hospitalization)
  Sender: FDA-Public Use
  Company Number: PHHO2014DE016819

PATIENT
  Age: 85 Year
  Sex: Male
  Weight: 54 kg

DRUGS (2)
  1. COMPARATOR PACLITAXEL [Suspect]
     Active Substance: PACLITAXEL
     Indication: GASTRIC CANCER
     Dosage: 80 MG/M2, QW (DAY 1, DAY 8 AND DAY 15)
     Route: 042
     Dates: start: 20141106, end: 20141206
  2. PLACEBO [Suspect]
     Active Substance: UNSPECIFIED INGREDIENT
     Indication: GASTRIC CANCER
     Dosage: DAILY D1-D28
     Route: 048
     Dates: start: 20141106, end: 20141215

REACTIONS (2)
  - Infection [Not Recovered/Not Resolved]
  - Aspiration [Fatal]

NARRATIVE: CASE EVENT DATE: 20141215
